FAERS Safety Report 8973953 (Version 1)
Quarter: 2012Q4

REPORT INFORMATION
  Report Type: Report from Study
  Country: US (occurrence: US)
  Receive Date: 20121218
  Receipt Date: 20121218
  Transmission Date: 20130627
  Serious: Yes (Hospitalization)
  Sender: FDA-Public Use
  Company Number: PHHO2012US017642

PATIENT
  Age: 37 Year
  Sex: Male

DRUGS (4)
  1. CERTICAN [Suspect]
     Indication: RENAL TRANSPLANT
     Dosage: 2.5 mg, BID
     Route: 048
     Dates: start: 20081118, end: 20121122
  2. TACROLIMUS [Suspect]
     Indication: RENAL TRANSPLANT
     Dosage: 1.5 mg, BID
     Route: 048
     Dates: start: 20121121
  3. CIMZIA [Concomitant]
     Indication: CROHN^S DISEASE
     Dosage: 400 mg per 2 week
  4. PREDNISONE [Concomitant]
     Indication: CROHN^S DISEASE
     Dosage: 20 mg, QD
     Route: 048
     Dates: start: 20121130

REACTIONS (2)
  - Post procedural bile leak [Recovering/Resolving]
  - Sepsis [Recovering/Resolving]
